FAERS Safety Report 5568123-1 (Version None)
Quarter: 2007Q4

REPORT INFORMATION
  Report Type: 
  Country: None (occurrence: None)
  Receive Date: 20071218
  Receipt Date: 20071218
  Transmission Date: 20080405
  Serious: No
  Sender: FDA-Public Use
  Company Number: None

PATIENT
  Age: 54 Year
  Sex: Male

DRUGS (1)
  1. INSULIN [Suspect]
     Indication: HYPERGLYCAEMIA
     Dosage: 100UNITS ONCE IV
     Route: 042
     Dates: start: 20070808, end: 20070808

REACTIONS (2)
  - HYPOGLYCAEMIA [None]
  - INCORRECT DOSE ADMINISTERED [None]
